FAERS Safety Report 24698233 (Version 1)
Quarter: 2024Q4

REPORT INFORMATION
  Report Type: Spontaneous
  Country: CA (occurrence: CA)
  Receive Date: 20241204
  Receipt Date: 20241204
  Transmission Date: 20250115
  Serious: Yes (Death, Life-Threatening)
  Sender: SANDOZ
  Company Number: CA-SANDOZ-SDZ2024CA100090

PATIENT
  Age: 72 Year
  Sex: Female

DRUGS (1)
  1. HEPARIN SODIUM [Suspect]
     Active Substance: HEPARIN SODIUM
     Indication: Product used for unknown indication
     Dosage: UNK
     Route: 065

REACTIONS (5)
  - Cerebral microembolism [Fatal]
  - Septic shock [Fatal]
  - Haemorrhage [Fatal]
  - Thrombocytopenia [Fatal]
  - Thrombosis [Fatal]
